FAERS Safety Report 17234172 (Version 8)
Quarter: 2025Q1

REPORT INFORMATION
  Report Type: Report from Study
  Country: US (occurrence: US)
  Receive Date: 20200106
  Receipt Date: 20250331
  Transmission Date: 20250408
  Serious: Yes (Other)
  Sender: TAKEDA
  Company Number: US-SHIRE-US201945656

PATIENT
  Age: 59 Year
  Sex: Female

DRUGS (2)
  1. HUMAN IMMUNOGLOBULIN G [Suspect]
     Active Substance: HUMAN IMMUNOGLOBULIN G
     Indication: Immunodeficiency common variable
     Dosage: 10 GRAM, 1/WEEK
  2. HUMAN IMMUNOGLOBULIN G [Suspect]
     Active Substance: HUMAN IMMUNOGLOBULIN G
     Indication: Primary immunodeficiency syndrome
     Dosage: 10 GRAM, 1/WEEK

REACTIONS (25)
  - Skin cancer [Unknown]
  - Hypothyroidism [Unknown]
  - Thyroid disorder [Unknown]
  - Skin disorder [Unknown]
  - Infection [Unknown]
  - Liquid product physical issue [Unknown]
  - Incorrect dose administered [Unknown]
  - Nausea [Unknown]
  - Pseudomonas infection [Unknown]
  - Sinusitis bacterial [Unknown]
  - Insurance issue [Unknown]
  - Thyroid hormones decreased [Unknown]
  - Eyelid disorder [Unknown]
  - Aggression [Unknown]
  - Mastocytosis [Unknown]
  - Inappropriate schedule of product administration [Unknown]
  - Product distribution issue [Unknown]
  - Product temperature excursion issue [Unknown]
  - Malaise [Unknown]
  - Insomnia [Unknown]
  - Restlessness [Unknown]
  - Anxiety [Unknown]
  - Lethargy [Unknown]
  - Pruritus [Unknown]
  - Fatigue [Unknown]

NARRATIVE: CASE EVENT DATE: 20191228
